FAERS Safety Report 24665331 (Version 1)
Quarter: 2024Q4

REPORT INFORMATION
  Report Type: Spontaneous
  Country: US (occurrence: US)
  Receive Date: 20241126
  Receipt Date: 20241126
  Transmission Date: 20250114
  Serious: No
  Sender: ELI LILLY AND COMPANY
  Company Number: US-ELI_LILLY_AND_COMPANY-US202411016268

PATIENT
  Sex: Male

DRUGS (2)
  1. HUMALOG MIX75/25 [Interacting]
     Active Substance: INSULIN LISPRO
     Indication: Product used for unknown indication
     Dosage: UNK UNK, UNKNOWN
     Route: 065
  2. COLLAGEN [Interacting]
     Active Substance: COLLAGEN
     Indication: Product used for unknown indication
     Dosage: UNK UNK, UNKNOWN
     Route: 065
     Dates: start: 20241124

REACTIONS (3)
  - Drug interaction [Unknown]
  - Blood glucose increased [Unknown]
  - Drug ineffective [Unknown]
